FAERS Safety Report 8075811-4 (Version None)
Quarter: 2012Q1

REPORT INFORMATION
  Report Type: 
  Country: None (occurrence: None)
  Receive Date: 20120127
  Receipt Date: 20120119
  Transmission Date: 20120608
  Serious: Yes (Hospitalization)
  Sender: FDA-Public Use
  Company Number: BR-PFIZER INC-2012015494

PATIENT
  Age: 64 Year
  Sex: Female

DRUGS (2)
  1. CELEBREX [Suspect]
     Indication: OSTEOARTHRITIS
     Dosage: 200 MG, 2X/DAY
     Route: 048
     Dates: start: 20110711, end: 20110720
  2. LIPITOR [Concomitant]
     Dosage: 10 MG, 1X/DAY (1 TABLET DAILY)
     Dates: start: 20100902

REACTIONS (2)
  - FEELING ABNORMAL [None]
  - CONVULSION [None]
